FAERS Safety Report 25025146 (Version 1)
Quarter: 2025Q1

REPORT INFORMATION
  Report Type: Spontaneous
  Country: US (occurrence: US)
  Receive Date: 20250228
  Receipt Date: 20250228
  Transmission Date: 20250408
  Serious: No
  Sender: PFIZER
  Company Number: US-PFIZER INC-202500045795

PATIENT
  Age: 26 Year
  Sex: Female

DRUGS (2)
  1. CIBINQO [Suspect]
     Active Substance: ABROCITINIB
     Indication: Dermatitis atopic
     Dosage: 200 MG (1 TABLET), 1X/DAY
     Route: 048
     Dates: start: 20240726
  2. BUPROPION [Concomitant]
     Active Substance: BUPROPION

REACTIONS (1)
  - Fatigue [Not Recovered/Not Resolved]
